FAERS Safety Report 6942796-0 (Version None)
Quarter: 2010Q3

REPORT INFORMATION
  Report Type: 
  Country: None (occurrence: None)
  Receive Date: 20100826
  Receipt Date: 20100816
  Transmission Date: 20110219
  Serious: Yes (Death)
  Sender: FDA-Public Use
  Company Number: TW-TEVA-244853ISR

PATIENT
  Age: 42 Year
  Sex: Female

DRUGS (5)
  1. BLEOMYCIN SULFATE [Suspect]
  2. VINCRISTINE [Suspect]
  3. CYCLOPHOSPHAMIDE [Suspect]
  4. DOXORUBICIN HCL [Suspect]
  5. PREDNISOLONE [Suspect]

REACTIONS (1)
  - VAGINAL CANCER [None]
